FAERS Safety Report 22610402 (Version 3)
Quarter: 2023Q4

REPORT INFORMATION
  Report Type: Report from Study
  Country: US (occurrence: US)
  Receive Date: 20230616
  Receipt Date: 20231027
  Transmission Date: 20240110
  Serious: Yes (Other)
  Sender: FDA-Public Use
  Company Number: US-ABBVIE-5293487

PATIENT
  Sex: Female
  Weight: 142 kg

DRUGS (14)
  1. RINVOQ [Suspect]
     Active Substance: UPADACITINIB
     Indication: Rheumatoid arthritis
     Dosage: LAST ADMIN DATE: 2021?STRENGTH: 15 MG
     Route: 048
     Dates: start: 20210430
  2. RINVOQ [Suspect]
     Active Substance: UPADACITINIB
     Indication: Rheumatoid arthritis
     Dosage: STRENGTH: 15 MG
     Route: 048
     Dates: start: 202112
  3. RINVOQ [Suspect]
     Active Substance: UPADACITINIB
     Indication: Rheumatoid arthritis
     Dosage: STRENGTH: 15 MG
     Route: 048
     Dates: start: 20230628
  4. HYDROCHLOROTHIAZIDE [Concomitant]
     Active Substance: HYDROCHLOROTHIAZIDE
     Indication: Product used for unknown indication
     Dosage: 90 CAPSULES FOR 90 DAYS?LAST ADMIN DATE: 2023/10
     Route: 048
     Dates: start: 20231018
  5. FENOFIBRATE [Concomitant]
     Active Substance: FENOFIBRATE
     Indication: Product used for unknown indication
     Dosage: 90 TABLETS FOR 90 DAYS
     Route: 048
     Dates: start: 20230926
  6. ROSUVASTATIN [Concomitant]
     Active Substance: ROSUVASTATIN
     Indication: Product used for unknown indication
     Dosage: ONE TABLET EVERY NIGHT AT BED TIME FOR 90 DAYS
     Route: 048
     Dates: start: 20230925
  7. AMLODIPINE [Concomitant]
     Active Substance: AMLODIPINE BESYLATE
     Indication: Product used for unknown indication
     Dosage: 90 TABLETS FOR 90 DAYS
     Route: 048
     Dates: start: 20230623
  8. BUPROPION [Concomitant]
     Active Substance: BUPROPION
     Indication: Product used for unknown indication
     Dosage: 24 HR TABLET?FOR 90 DAYS
     Route: 048
     Dates: start: 20230518
  9. VIBEGRON [Concomitant]
     Active Substance: VIBEGRON
     Indication: Product used for unknown indication
     Dosage: FOR 30 DAYS
     Route: 048
     Dates: start: 20230119
  10. CALCIUM\CHOLECALCIFEROL\MAGNESIUM [Concomitant]
     Active Substance: CALCIUM\CHOLECALCIFEROL\MAGNESIUM
     Indication: Product used for unknown indication
     Dosage: CALCIUM 1200+D3 PO
     Route: 048
  11. MAGNESIUM [Concomitant]
     Active Substance: MAGNESIUM
     Indication: Product used for unknown indication
     Route: 048
  12. METHENAMINE [Concomitant]
     Active Substance: METHENAMINE
     Indication: Product used for unknown indication
     Dosage: TWICE DAILY WITH MEALS?180 TABLETS
     Dates: start: 20220929
  13. RINVOQ [Concomitant]
     Active Substance: UPADACITINIB
     Indication: Product used for unknown indication
     Dosage: TB24
     Route: 048
  14. ZOLEDRONIC ACID [Concomitant]
     Active Substance: ZOLEDRONIC ACID
     Indication: Product used for unknown indication
     Dosage: FORM STRENGTH: 5 MG?INJECT 100 ML (5 MG TOTAL) INTO THE VEIN ONCE

REACTIONS (2)
  - Skin cancer [Unknown]
  - Nasal cavity mass [Unknown]
